FAERS Safety Report 5879047-4 (Version None)
Quarter: 2008Q3

REPORT INFORMATION
  Report Type: 
  Country: None (occurrence: None)
  Receive Date: 20080912
  Receipt Date: 20080909
  Transmission Date: 20090109
  Serious: Yes (Death, Other)
  Sender: FDA-Public Use
  Company Number: PHHY2007MX00993

PATIENT
  Sex: Female

DRUGS (2)
  1. ZELMAC [Suspect]
     Indication: IRRITABLE BOWEL SYNDROME
     Dosage: 2 TABLETS (6MG) PER DAY
     Route: 048
  2. DRUG THERAPY NOS [Concomitant]

REACTIONS (5)
  - DEATH [None]
  - DYSGEUSIA [None]
  - EATING DISORDER [None]
  - SURGERY [None]
  - VOMITING [None]
